FAERS Safety Report 18535804 (Version 1)
Quarter: 2020Q4

REPORT INFORMATION
  Report Type: Other
  Country: NL (occurrence: FR)
  Receive Date: 20201123
  Receipt Date: 20201123
  Transmission Date: 20210114
  Serious: Yes (Hospitalization)
  Sender: FDA-Public Use
  Company Number: NL-CHIESI-2020CHF05479

PATIENT
  Age: 13 Year
  Sex: Male

DRUGS (7)
  1. FERRIPROX [Suspect]
     Active Substance: DEFERIPRONE
     Indication: IRON OVERLOAD
     Dosage: 3000 MILLIGRAM, QD
     Route: 048
     Dates: start: 20181221, end: 20190816
  2. EXJADE [Suspect]
     Active Substance: DEFERASIROX
     Indication: IRON OVERLOAD
     Dosage: 720 MILLIGRAM, QD
     Route: 048
     Dates: start: 2017, end: 20190816
  3. DESFERAL [Suspect]
     Active Substance: DEFEROXAMINE MESYLATE
     Indication: IRON OVERLOAD
     Dosage: 2000 MILLIGRAM, QD
     Route: 058
     Dates: start: 20180821, end: 20190816
  4. AMOXICILLIN. [Suspect]
     Active Substance: AMOXICILLIN
     Indication: TONSILLITIS STREPTOCOCCAL
     Dosage: 1500 MILLIGRAM, QD
     Route: 048
     Dates: start: 20190618, end: 20190816
  5. SIKLOS [Suspect]
     Active Substance: HYDROXYUREA
     Indication: THALASSAEMIA BETA
     Dosage: 600 MILLIGRAM, QD
     Route: 048
     Dates: start: 2017, end: 20190816
  6. ORACILLINE [Concomitant]
     Active Substance: PENICILLIN V
     Indication: PRODUCT USED FOR UNKNOWN INDICATION
     Dosage: 2000000 INTERNATIONAL UNIT, QD
     Route: 048
     Dates: start: 20190618
  7. SPECIAFOLDINE [Concomitant]
     Active Substance: FOLIC ACID
     Indication: PRODUCT USED FOR UNKNOWN INDICATION
     Dosage: 5 MILLIGRAM, QD
     Route: 048

REACTIONS (2)
  - Abdominal pain [Not Recovered/Not Resolved]
  - Transaminases increased [Recovering/Resolving]

NARRATIVE: CASE EVENT DATE: 20190810
